FAERS Safety Report 6742571-6 (Version None)
Quarter: 2010Q2

REPORT INFORMATION
  Report Type: 
  Country: None (occurrence: None)
  Receive Date: 20100526
  Receipt Date: 20100524
  Transmission Date: 20101027
  Serious: Yes (Other)
  Sender: FDA-Public Use
  Company Number: AU-ABBOTT-10P-008-0646859-00

PATIENT
  Age: 39 Year
  Sex: Female

DRUGS (2)
  1. CLARITHROMYCIN [Suspect]
     Indication: CHRONIC SINUSITIS
  2. CLARATYNE [Suspect]
     Indication: CHRONIC SINUSITIS

REACTIONS (1)
  - ABORTION SPONTANEOUS [None]
